FAERS Safety Report 11181468 (Version 1)
Quarter: 2015Q2

REPORT INFORMATION
  Report Type: Spontaneous
  Country: US (occurrence: US)
  Receive Date: 20150611
  Receipt Date: 20150611
  Transmission Date: 20150821
  Serious: Yes (Other)
  Sender: FDA-Public Use
  Company Number: US-ASTELLAS-2015US012189

PATIENT
  Age: 84 Year
  Sex: Male

DRUGS (2)
  1. XTANDI [Suspect]
     Active Substance: ENZALUTAMIDE
     Route: 065
     Dates: start: 20141219, end: 20150410
  2. XTANDI [Suspect]
     Active Substance: ENZALUTAMIDE
     Indication: PROSTATE CANCER METASTATIC
     Route: 048
     Dates: start: 20141010, end: 20141121

REACTIONS (12)
  - Feeling abnormal [Recovering/Resolving]
  - Asthenia [Unknown]
  - Sleep disorder [Not Recovered/Not Resolved]
  - Underdose [Unknown]
  - Confusional state [Recovered/Resolved]
  - Amnesia [Unknown]
  - Drug intolerance [Unknown]
  - Anxiety [Unknown]
  - Nightmare [Recovered/Resolved]
  - Disorientation [Recovered/Resolved]
  - Fatigue [Recovering/Resolving]
  - Prostatic specific antigen increased [Unknown]

NARRATIVE: CASE EVENT DATE: 20141121
